FAERS Safety Report 15254246 (Version 1)
Quarter: 2018Q3

REPORT INFORMATION
  Report Type: Spontaneous
  Country: US (occurrence: US)
  Receive Date: 20180717
  Receipt Date: 20180717
  Transmission Date: 20181010
  Serious: Yes (Hospitalization)
  Sender: FDA-Public Use
  Company Number: None

PATIENT
  Age: 51 Year
  Sex: Female

DRUGS (19)
  1. CRANBERRY. [Concomitant]
     Active Substance: CRANBERRY
  2. NIFEDIPINE. [Concomitant]
     Active Substance: NIFEDIPINE
  3. OMEGA 3 [Concomitant]
     Active Substance: OMEGA-3 FATTY ACIDS
  4. TART CHERRY [Concomitant]
  5. ATENOLOL. [Concomitant]
     Active Substance: ATENOLOL
  6. MYCOPHENOLATE [Suspect]
     Active Substance: MYCOPHENOLIC ACID
     Indication: RENAL TRANSPLANT
     Route: 048
     Dates: start: 20141008
  7. ASPIRIN. [Concomitant]
     Active Substance: ASPIRIN
  8. PREDNISONE. [Concomitant]
     Active Substance: PREDNISONE
  9. PROGRAF [Suspect]
     Active Substance: TACROLIMUS\TACROLIMUS ANHYDROUS
     Indication: RENAL TRANSPLANT
     Route: 048
     Dates: start: 20141121
  10. ATORVASTATIN [Concomitant]
     Active Substance: ATORVASTATIN
  11. IRON [Concomitant]
     Active Substance: IRON
  12. LANTUS [Concomitant]
     Active Substance: INSULIN GLARGINE
  13. NOVOLOG [Concomitant]
     Active Substance: INSULIN ASPART
  14. VITAMIN D [Concomitant]
     Active Substance: CHOLECALCIFEROL
  15. LIPITOR [Concomitant]
     Active Substance: ATORVASTATIN CALCIUM
  16. LOSARTAN POT [Concomitant]
     Active Substance: LOSARTAN POTASSIUM
  17. METHENAM MAN [Concomitant]
  18. BUPROPION. [Concomitant]
     Active Substance: BUPROPION
  19. FUROSEMIDE. [Concomitant]
     Active Substance: FUROSEMIDE

REACTIONS (1)
  - Hospitalisation [None]
